FAERS Safety Report 15298837 (Version 1)
Quarter: 2018Q3

REPORT INFORMATION
  Report Type: Report from Study
  Country: None (occurrence: US)
  Receive Date: 20180821
  Receipt Date: 20180821
  Transmission Date: 20181010
  Serious: Yes (Other)
  Sender: FDA-Public Use
  Company Number: US-ABBVIE-18K-163-2411457-00

PATIENT
  Age: 46 Year
  Sex: Female
  Weight: 89.89 kg

DRUGS (13)
  1. FOLIC ACID. [Concomitant]
     Active Substance: FOLIC ACID
     Indication: PROPHYLAXIS
  2. VITAMIN D [Concomitant]
     Active Substance: CHOLECALCIFEROL
     Indication: VITAMIN SUPPLEMENTATION
  3. KEFLEX [Concomitant]
     Active Substance: CEPHALEXIN
     Indication: PRODUCT USED FOR UNKNOWN INDICATION
  4. HUMIRA [Suspect]
     Active Substance: ADALIMUMAB
     Indication: RHEUMATOID ARTHRITIS
     Route: 058
     Dates: start: 201610, end: 20180718
  5. AMITIZA [Concomitant]
     Active Substance: LUBIPROSTONE
     Indication: IRRITABLE BOWEL SYNDROME
  6. PROAIR HFA [Concomitant]
     Active Substance: ALBUTEROL SULFATE
     Indication: COUGH
  7. RESTASIS [Concomitant]
     Active Substance: CYCLOSPORINE
     Indication: UVEITIS
  8. DERMABOND [Suspect]
     Active Substance: OCRYLATE
     Indication: PRODUCT USED FOR UNKNOWN INDICATION
     Route: 065
  9. PRILOSEC [Concomitant]
     Active Substance: OMEPRAZOLE MAGNESIUM
     Indication: GASTROOESOPHAGEAL REFLUX DISEASE
  10. HUMIRA [Suspect]
     Active Substance: ADALIMUMAB
     Indication: UVEITIS
  11. CARBAMAZEPINE. [Concomitant]
     Active Substance: CARBAMAZEPINE
     Indication: NEURALGIA
  12. METHOTREXATE. [Concomitant]
     Active Substance: METHOTREXATE
     Indication: UVEITIS
  13. QVAR [Concomitant]
     Active Substance: BECLOMETHASONE DIPROPIONATE
     Indication: COUGH

REACTIONS (7)
  - Breast pain [Recovering/Resolving]
  - Fatigue [Not Recovered/Not Resolved]
  - Scar [Recovered/Resolved]
  - Feeling abnormal [Recovering/Resolving]
  - Amenorrhoea [Recovered/Resolved]
  - Rash erythematous [Recovering/Resolving]
  - Benign breast neoplasm [Unknown]

NARRATIVE: CASE EVENT DATE: 2017
